FAERS Safety Report 25009339 (Version 2)
Quarter: 2025Q1

REPORT INFORMATION
  Report Type: Spontaneous
  Country: US (occurrence: US)
  Receive Date: 20250225
  Receipt Date: 20250327
  Transmission Date: 20250408
  Serious: No
  Sender: COREPHARMA LLC
  Company Number: US-CorePharma LLC-2171781

PATIENT

DRUGS (1)
  1. LISINOPRIL [Suspect]
     Active Substance: LISINOPRIL
     Indication: Product used for unknown indication
     Dates: end: 20250116

REACTIONS (3)
  - Balance disorder [Recovered/Resolved]
  - Product substitution issue [Unknown]
  - Dizziness [Recovered/Resolved]
